FAERS Safety Report 12858301 (Version 4)
Quarter: 2018Q1

REPORT INFORMATION
  Report Type: Spontaneous
  Country: US (occurrence: US)
  Receive Date: 20161018
  Receipt Date: 20180315
  Transmission Date: 20180508
  Serious: Yes (Hospitalization, Other)
  Sender: FDA-Public Use
  Company Number: US-ELI_LILLY_AND_COMPANY-US201610005190

PATIENT
  Age: 67 Year
  Sex: Male
  Weight: 123.36 kg

DRUGS (20)
  1. METFORMIN [Concomitant]
     Active Substance: METFORMIN HYDROCHLORIDE
     Indication: DIABETES MELLITUS
     Dosage: UNK, UNKNOWN
     Route: 065
     Dates: start: 200904
  2. POTASSIUM [Concomitant]
     Active Substance: POTASSIUM
     Indication: SUPPLEMENTATION THERAPY
  3. GENERLAC [Concomitant]
     Active Substance: LACTULOSE
     Indication: PRODUCT USED FOR UNKNOWN INDICATION
     Dosage: UNK, UNKNOWN
     Route: 065
     Dates: start: 201310, end: 201410
  4. BENAZEPRIL [Concomitant]
     Active Substance: BENAZEPRIL HYDROCHLORIDE
     Indication: HYPERTENSION
     Dosage: UNK, UNKNOWN
     Route: 065
     Dates: start: 200905, end: 201401
  5. VICTOZA [Concomitant]
     Active Substance: LIRAGLUTIDE
     Indication: DIABETES MELLITUS
     Dosage: UNK, UNKNOWN
     Route: 065
     Dates: start: 201006, end: 201403
  6. AXIRON [Suspect]
     Active Substance: TESTOSTERONE
     Indication: ANDROGEN REPLACEMENT THERAPY
     Dosage: UNK UNK, QD
     Route: 065
     Dates: start: 20120221, end: 201311
  7. AMLODIPINE BESYLATE. [Concomitant]
     Active Substance: AMLODIPINE BESYLATE
     Indication: HYPERTENSION
     Dosage: UNK, UNKNOWN
     Route: 065
     Dates: start: 200902
  8. NOVOLOG [Concomitant]
     Active Substance: INSULIN ASPART
     Indication: DIABETES MELLITUS
     Dosage: UNK, UNKNOWN
     Route: 065
     Dates: start: 201308
  9. CRESTOR [Concomitant]
     Active Substance: ROSUVASTATIN CALCIUM
     Indication: BLOOD CHOLESTEROL
     Dosage: UNK, UNKNOWN
     Route: 065
     Dates: start: 200907, end: 201506
  10. LEVEMIR [Concomitant]
     Active Substance: INSULIN DETEMIR
     Indication: DIABETES MELLITUS
     Dosage: UNK, UNKNOWN
     Route: 065
     Dates: start: 201010, end: 201508
  11. SPIRONOLACTONE. [Concomitant]
     Active Substance: SPIRONOLACTONE
     Indication: FLUID RETENTION
     Dosage: UNK, UNKNOWN
     Route: 065
     Dates: start: 201203, end: 201401
  12. CIMETIDINE [Concomitant]
     Active Substance: CIMETIDINE
     Indication: GASTRIC DISORDER
     Dosage: UNK, UNKNOWN
     Route: 065
  13. GLIMEPIRIDE. [Concomitant]
     Active Substance: GLIMEPIRIDE
     Indication: BLOOD GLUCOSE ABNORMAL
     Dosage: UNK, UNKNOWN
     Route: 065
     Dates: start: 201212, end: 201309
  14. CHLORTHALIDONE. [Concomitant]
     Active Substance: CHLORTHALIDONE
     Indication: HYPERTENSION
     Dosage: UNK, UNKNOWN
     Route: 065
     Dates: start: 201110
  15. POTASSIUM [Concomitant]
     Active Substance: POTASSIUM
     Indication: HYPERTENSION
     Dosage: UNK, UNKNOWN
     Route: 065
     Dates: start: 201110, end: 201505
  16. ZETIA [Concomitant]
     Active Substance: EZETIMIBE
     Indication: BLOOD CHOLESTEROL
     Dosage: UNK, UNKNOWN
     Route: 065
     Dates: start: 200901, end: 201401
  17. MICARDIS [Concomitant]
     Active Substance: TELMISARTAN
     Indication: HYPERTENSION
     Dosage: UNK, UNKNOWN
     Route: 065
     Dates: start: 200810, end: 201309
  18. AXIRON [Suspect]
     Active Substance: TESTOSTERONE
     Indication: BLOOD TESTOSTERONE DECREASED
  19. BYSTOLIC [Concomitant]
     Active Substance: NEBIVOLOL HYDROCHLORIDE
     Indication: HYPERTENSION
     Dosage: UNK, UNKNOWN
     Route: 065
     Dates: start: 201109, end: 201401
  20. CIALIS [Concomitant]
     Active Substance: TADALAFIL
     Indication: ERECTILE DYSFUNCTION
     Dosage: UNK, UNKNOWN
     Route: 065
     Dates: start: 201211, end: 201212

REACTIONS (5)
  - Cerebrovascular accident [Not Recovered/Not Resolved]
  - Upper limb fracture [Unknown]
  - Deep vein thrombosis [Not Recovered/Not Resolved]
  - Fall [Unknown]
  - Pulmonary embolism [Not Recovered/Not Resolved]

NARRATIVE: CASE EVENT DATE: 20140102
